FAERS Safety Report 7286597-5 (Version None)
Quarter: 2011Q1

REPORT INFORMATION
  Report Type: 
  Country: None (occurrence: None)
  Receive Date: 20110210
  Receipt Date: 20110203
  Transmission Date: 20110831
  Serious: No
  Sender: FDA-Public Use
  Company Number: US-PFIZER INC-2011024355

PATIENT
  Sex: Female

DRUGS (2)
  1. PRISTIQ [Suspect]
     Indication: DEPRESSION
     Dosage: 50 MG, 1X/DAY
     Route: 048
     Dates: start: 20100101, end: 20101201
  2. MULTIVITAMIN [Concomitant]
     Dosage: UNK

REACTIONS (3)
  - MEDICATION RESIDUE [None]
  - DRUG INEFFECTIVE [None]
  - DIARRHOEA [None]
